FAERS Safety Report 5921252 (Version 2)
Quarter: 2020Q3

REPORT INFORMATION
  Report Type: Report from Study
  Country: DE (occurrence: DE)
  Receive Date: 20051111
  Receipt Date: 20060330
  Transmission Date: 20201105
  Serious: Yes (Death, Life-Threatening, Hospitalization)
  Sender: FDA-Public Use
  Company Number: DE-JNJFOC-20030602017

PATIENT
  Age: 59 Year
  Sex: Male

DRUGS (7)
  1. INFLIXIMAB [Suspect]
     Active Substance: INFLIXIMAB
     Indication: CACHEXIA
     Route: 042
  2. PLACEBO [Suspect]
     Active Substance: UNSPECIFIED INGREDIENT
     Indication: CACHEXIA
     Route: 042
  3. GEMCITABINE. [Concomitant]
     Active Substance: GEMCITABINE
  4. SPIRONOLACTONE. [Concomitant]
     Active Substance: SPIRONOLACTONE
  5. FUROSEMIDE. [Concomitant]
     Active Substance: FUROSEMIDE
  6. CIPROFLOXACIN HYDROCHLORIDE. [Concomitant]
     Active Substance: CIPROFLOXACIN HYDROCHLORIDE
     Route: 048
  7. PLACEBO [Suspect]
     Active Substance: UNSPECIFIED INGREDIENT
     Indication: CACHEXIA
     Route: 042

REACTIONS (9)
  - Depression [Unknown]
  - Pancreatic carcinoma [Fatal]
  - Hypoalbuminaemia [Unknown]
  - Peritonitis [Not Recovered/Not Resolved]
  - Anaemia [Unknown]
  - Ascites [Unknown]
  - Urosepsis [Unknown]
  - Oedema [Unknown]
  - Subileus [Unknown]

NARRATIVE: CASE EVENT DATE: 20030604
